FAERS Safety Report 15761354 (Version 2)
Quarter: 2019Q1

REPORT INFORMATION
  Report Type: Report from Study
  Country: BR (occurrence: BR)
  Receive Date: 20181226
  Receipt Date: 20190109
  Transmission Date: 20190417
  Serious: Yes (Hospitalization, Other)
  Sender: FDA-Public Use
  Company Number: PHHY2018BR193636

PATIENT
  Age: 87 Year
  Sex: Female
  Weight: 73 kg

DRUGS (4)
  1. DIOVAN [Suspect]
     Active Substance: VALSARTAN
     Indication: CARDIAC DISORDER
     Dosage: 160 MG, BID
     Route: 048
     Dates: start: 20181109
  2. DIOVAN [Suspect]
     Active Substance: VALSARTAN
     Indication: HYPERTENSION
     Dosage: 160 MG, BID
     Route: 048
     Dates: end: 201809
  3. INDAPAMIDE. [Concomitant]
     Active Substance: INDAPAMIDE
     Indication: POLYURIA
     Dosage: 1.5 MG, QD (05 YEARS AGO STARTED)
     Route: 048
  4. PROLIVE [Concomitant]
     Indication: DIVERTICULITIS
     Dosage: 1 DF, QD (AFTER LUNCH) (06 TO 07 YEARS BEFORE STARTED)
     Route: 048

REACTIONS (3)
  - Gait disturbance [Recovering/Resolving]
  - Peripheral swelling [Recovering/Resolving]
  - Arthritis infective [Recovering/Resolving]

NARRATIVE: CASE EVENT DATE: 201804
